FAERS Safety Report 9569465 (Version 2)
Quarter: 2014Q1

REPORT INFORMATION
  Report Type: Spontaneous
  Country: US (occurrence: US)
  Receive Date: 20130930
  Receipt Date: 20140303
  Transmission Date: 20141002
  Serious: No
  Sender: FDA-Public Use
  Company Number: US-AMGEN-USASP2013066581

PATIENT
  Age: 30 Year
  Sex: Female
  Weight: 108.84 kg

DRUGS (8)
  1. ENBREL [Suspect]
     Indication: PSORIASIS
     Dosage: 50 MG, 2 TIMES/WK (72 TO 96 HOURS APART)
     Route: 058
  2. ENBREL [Suspect]
     Indication: PSORIATIC ARTHROPATHY
  3. KLONOPIN [Concomitant]
     Dosage: 1 MG, UNK
  4. ALBUTEROL                          /00139501/ [Concomitant]
     Dosage: 90 MUG, UNK
  5. DEPAKOTE [Concomitant]
     Dosage: 250 MG, UNK
  6. OMEPRAZOLE [Concomitant]
     Dosage: 20 MG, UNK
  7. NAPROXEN [Concomitant]
     Dosage: 500 MG, UNK
  8. CLORAZEPATE DIPOT [Concomitant]
     Dosage: 15 MG, UNK

REACTIONS (9)
  - Sputum discoloured [Recovering/Resolving]
  - Productive cough [Recovering/Resolving]
  - Wrist fracture [Recovering/Resolving]
  - Fall [Recovering/Resolving]
  - Muscle spasms [Recovering/Resolving]
  - Weight increased [Unknown]
  - Injection site bruising [Unknown]
  - Injection site pain [Recovering/Resolving]
  - Upper respiratory tract infection [Recovering/Resolving]
